FAERS Safety Report 13681746 (Version 1)
Quarter: 2017Q2

REPORT INFORMATION
  Report Type: Spontaneous
  Country: US (occurrence: US)
  Receive Date: 20170623
  Receipt Date: 20170623
  Transmission Date: 20170830
  Serious: Yes (Other)
  Sender: FDA-Public Use
  Company Number: US-BAYER-2017-103538

PATIENT
  Age: 1 Year
  Sex: Female
  Weight: 12 kg

DRUGS (1)
  1. LOTRIMIN [Suspect]
     Active Substance: CLOTRIMAZOLE
     Dosage: THIN LAYER DOSE
     Route: 061
     Dates: start: 20170520, end: 20170531

REACTIONS (4)
  - Wound secretion [Not Recovered/Not Resolved]
  - Wound haemorrhage [Not Recovered/Not Resolved]
  - Wrong technique in product usage process [Unknown]
  - Wound infection [Not Recovered/Not Resolved]

NARRATIVE: CASE EVENT DATE: 20170521
